FAERS Safety Report 13974325 (Version 6)
Quarter: 2019Q1

REPORT INFORMATION
  Report Type: Spontaneous
  Country: US (occurrence: US)
  Receive Date: 20170915
  Receipt Date: 20190107
  Transmission Date: 20190417
  Serious: Yes (Hospitalization, Other)
  Sender: FDA-Public Use
  Company Number: US-PFIZER INC-2017397269

PATIENT
  Age: 50 Year
  Sex: Male
  Weight: 84 kg

DRUGS (7)
  1. COUMADIN [Suspect]
     Active Substance: WARFARIN SODIUM
     Dosage: UNK
  2. CELLCEPT [Suspect]
     Active Substance: MYCOPHENOLATE MOFETIL\MYCOPHENOLATE MOFETIL HYDROCHLORIDE
     Indication: PROPHYLAXIS AGAINST TRANSPLANT REJECTION
  3. WARFARIN [Suspect]
     Active Substance: WARFARIN
     Dosage: 3 MG, UNK
     Dates: start: 2002
  4. WARFARIN [Suspect]
     Active Substance: WARFARIN
     Dosage: 2 MG, UNK
     Dates: start: 2002
  5. CELLCEPT [Suspect]
     Active Substance: MYCOPHENOLATE MOFETIL\MYCOPHENOLATE MOFETIL HYDROCHLORIDE
     Indication: HEART TRANSPLANT
     Dosage: 500 MG, 2X/DAY
     Dates: start: 200210
  6. RAPAMUNE [Suspect]
     Active Substance: SIROLIMUS
     Indication: PROPHYLAXIS AGAINST TRANSPLANT REJECTION
     Dosage: 1 MG, DAILY
     Route: 048
     Dates: start: 2002
  7. RAPAMUNE [Suspect]
     Active Substance: SIROLIMUS
     Indication: HEART TRANSPLANT
     Dosage: 1 MG, 1X/DAY
     Route: 048
     Dates: start: 2005

REACTIONS (10)
  - Body height decreased [Unknown]
  - Osteoporosis [Unknown]
  - Cognitive disorder [Not Recovered/Not Resolved]
  - Product physical issue [Unknown]
  - Haemorrhagic stroke [Recovered/Resolved]
  - Muscular weakness [Not Recovered/Not Resolved]
  - Asthenia [Not Recovered/Not Resolved]
  - Sepsis [Unknown]
  - Product use in unapproved indication [Unknown]
  - Suspected product contamination [Unknown]

NARRATIVE: CASE EVENT DATE: 2002
